FAERS Safety Report 23329041 (Version 2)
Quarter: 2024Q1

REPORT INFORMATION
  Report Type: Spontaneous
  Country: US (occurrence: US)
  Receive Date: 20231222
  Receipt Date: 20240130
  Transmission Date: 20240409
  Serious: No
  Sender: FDA-Public Use
  Company Number: US-JNJFOC-20231238231

PATIENT
  Sex: Male

DRUGS (1)
  1. SPRAVATO [Suspect]
     Active Substance: ESKETAMINE
     Indication: Depression

REACTIONS (4)
  - Incorrect dose administered by device [Unknown]
  - Device issue [Unknown]
  - Dissociation [Unknown]
  - Dysgeusia [Unknown]
